FAERS Safety Report 17452703 (Version 1)
Quarter: 2020Q1

REPORT INFORMATION
  Report Type: Spontaneous
  Country: LT (occurrence: LT)
  Receive Date: 20200224
  Receipt Date: 20200224
  Transmission Date: 20200409
  Serious: Yes (Hospitalization)
  Sender: FDA-Public Use
  Company Number: LT-ALLERGAN-2007828US

PATIENT
  Sex: Female

DRUGS (1)
  1. MESALAZINE UNK [Suspect]
     Active Substance: MESALAMINE
     Indication: CROHN^S DISEASE
     Dosage: 5 TABLETS PER DAY, 2 IN THE MORNING AND 3 IN THE EVENING
     Route: 048
     Dates: start: 2019

REACTIONS (2)
  - Pneumonia [Unknown]
  - Product residue present [Unknown]

NARRATIVE: CASE EVENT DATE: 2020
